FAERS Safety Report 18959854 (Version 2)
Quarter: 2021Q2

REPORT INFORMATION
  Report Type: Spontaneous
  Country: ES (occurrence: ES)
  Receive Date: 20210302
  Receipt Date: 20210402
  Transmission Date: 20210717
  Serious: Yes (Death)
  Sender: FDA-Public Use
  Company Number: NVSC2021ES048337

PATIENT

DRUGS (1)
  1. MYCOPHENOLIC ACID. [Suspect]
     Active Substance: MYCOPHENOLIC ACID
     Indication: FOETAL EXPOSURE DURING PREGNANCY
     Dosage: PATERNAL EXPOSURE TIMING UNSPECIFIED: DOSE UNKNOW
     Route: 050

REACTIONS (2)
  - Exposure via father [Unknown]
  - Placental transfusion syndrome [Fatal]
